FAERS Safety Report 10401926 (Version 1)
Quarter: 2014Q3

REPORT INFORMATION
  Report Type: Spontaneous
  Country: US (occurrence: US)
  Receive Date: 20140822
  Receipt Date: 20140822
  Transmission Date: 20150326
  Serious: Yes (Other)
  Sender: FDA-Public Use
  Company Number: US-ASTRAZENECA-2014SE61230

PATIENT
  Age: 69 Year
  Sex: Female
  Weight: 63.5 kg

DRUGS (2)
  1. TENORMIN [Suspect]
     Active Substance: ATENOLOL
     Route: 048
     Dates: start: 2005, end: 201312
  2. TENORMIN [Suspect]
     Active Substance: ATENOLOL
     Route: 048

REACTIONS (11)
  - Pain [Unknown]
  - Sleep apnoea syndrome [Unknown]
  - Dyspnoea [Unknown]
  - Agitation [Unknown]
  - Cardiac disorder [Unknown]
  - Blood pressure increased [Unknown]
  - Sleep disorder [Unknown]
  - Chest discomfort [Unknown]
  - Palpitations [Unknown]
  - Hypertension [Unknown]
  - Frustration [Unknown]
